FAERS Safety Report 22765704 (Version 2)
Quarter: 2023Q4

REPORT INFORMATION
  Report Type: Other
  Country: JP (occurrence: JP)
  Receive Date: 20230731
  Receipt Date: 20231207
  Transmission Date: 20240110
  Serious: Yes (Hospitalization, Disabling, Other)
  Sender: FDA-Public Use
  Company Number: JP-CHUGAI-2023027090AA

PATIENT
  Age: 7 Decade
  Sex: Male

DRUGS (6)
  1. AVASTIN [Suspect]
     Active Substance: BEVACIZUMAB
     Indication: Colon cancer
     Dosage: UNK
     Route: 041
  2. AVASTIN [Suspect]
     Active Substance: BEVACIZUMAB
     Dosage: UNK
     Route: 041
  3. CAPECITABINE [Suspect]
     Active Substance: CAPECITABINE
     Indication: Colon cancer
     Route: 048
  4. CAPECITABINE [Suspect]
     Active Substance: CAPECITABINE
     Route: 048
  5. OXALIPLATIN [Concomitant]
     Active Substance: OXALIPLATIN
     Indication: Colon cancer
     Dosage: UNK
     Route: 041
  6. OXALIPLATIN [Concomitant]
     Active Substance: OXALIPLATIN
     Dosage: UNK
     Route: 041

REACTIONS (6)
  - Epididymitis [Unknown]
  - Decreased appetite [Recovering/Resolving]
  - Anal abscess [Unknown]
  - Failure to anastomose [Unknown]
  - Performance status decreased [Recovering/Resolving]
  - Off label use [Unknown]
